FAERS Safety Report 13094055 (Version 1)
Quarter: 2017Q1

REPORT INFORMATION
  Report Type: Spontaneous
  Country: US (occurrence: US)
  Receive Date: 20170106
  Receipt Date: 20170106
  Transmission Date: 20170428
  Serious: No
  Sender: FDA-Public Use
  Company Number: US-PFIZER INC-2016604530

PATIENT
  Age: 65 Year
  Sex: Female

DRUGS (3)
  1. NYSTATIN. [Suspect]
     Active Substance: NYSTATIN
  2. DEMEROL [Suspect]
     Active Substance: MEPERIDINE HYDROCHLORIDE
     Dosage: UNK
  3. TETANUS TOXOID ADSORBED [Suspect]
     Active Substance: CLOSTRIDIUM TETANI TOXOID ANTIGEN (FORMALDEHYDE INACTIVATED)
     Indication: IMMUNISATION

REACTIONS (1)
  - Drug hypersensitivity [Unknown]
